FAERS Safety Report 5158598-4 (Version None)
Quarter: 2006Q4

REPORT INFORMATION
  Report Type: 
  Country: None (occurrence: None)
  Receive Date: 20061117
  Receipt Date: 20061110
  Transmission Date: 20070319
  Serious: Yes (Death, Disabling)
  Sender: FDA-Public Use
  Company Number: AUWYE488109NOV06

PATIENT
  Sex: Male

DRUGS (1)
  1. TIGECYCLINE (TIGECYCLINE, INJECTION, 0) [Suspect]
     Indication: STAPHYLOCOCCAL INFECTION
     Dosage: INTRAVENOUS
     Route: 042

REACTIONS (5)
  - ANTIMICROBIAL SUSCEPTIBILITY TEST SENSITIVE [None]
  - DRUG INEFFECTIVE [None]
  - LOSS OF CONSCIOUSNESS [None]
  - METHICILLIN-RESISTANT STAPHYLOCOCCAL AUREUS TEST POSITIVE [None]
  - MINIMUM INHIBITORY CONCENTRATION [None]
